FAERS Safety Report 12746252 (Version 1)
Quarter: 2016Q3

REPORT INFORMATION
  Report Type: Spontaneous
  Country: CN (occurrence: CN)
  Receive Date: 20160915
  Receipt Date: 20160915
  Transmission Date: 20161109
  Serious: Yes (Other)
  Sender: FDA-Public Use
  Company Number: CN-PFIZER INC-2016431355

PATIENT
  Age: 53 Year
  Sex: Female
  Weight: 78 kg

DRUGS (5)
  1. QUETIAPINE. [Suspect]
     Active Substance: QUETIAPINE
     Dosage: 0.2 G, 2X/DAY
     Route: 048
     Dates: start: 20160613, end: 20160616
  2. VALPROATE [Concomitant]
     Active Substance: VALPROIC ACID
     Indication: EMOTIONAL DISORDER
     Dosage: 0.2 G, 2X/DAY
     Route: 048
     Dates: start: 20160613, end: 20160616
  3. ZOLOFT [Suspect]
     Active Substance: SERTRALINE HYDROCHLORIDE
     Dosage: 50 MG, 2X/DAY
     Route: 048
     Dates: start: 20160612, end: 20160612
  4. CLONAZEPAM. [Concomitant]
     Active Substance: CLONAZEPAM
     Dosage: 2 MG, 1X/DAY
     Route: 048
     Dates: start: 20160613, end: 20160617
  5. CLOZAPINA ROSPAW [Suspect]
     Active Substance: CLOZAPINE
     Dosage: 50 MG, 2X/DAY
     Route: 048
     Dates: start: 20160613, end: 20160616

REACTIONS (1)
  - Neuroleptic malignant syndrome [Recovering/Resolving]

NARRATIVE: CASE EVENT DATE: 20160618
